FAERS Safety Report 4881572-X (Version None)
Quarter: 2005Q4

REPORT INFORMATION
  Report Type: 
  Country: None (occurrence: None)
  Receive Date: 20051209
  Receipt Date: 20050811
  Transmission Date: 20060501
  Serious: Yes (Death)
  Sender: FDA-Public Use
  Company Number: USA-2005-0020990

PATIENT
  Age: 49 Year
  Sex: Male
  Weight: 73.5 kg

DRUGS (5)
  1. OXYCODONE HCL [Suspect]
  2. DIAZEPAM [Suspect]
  3. TEMAZEPAM [Suspect]
  4. TETRAHYDROCANNABINOL (TETRAHYDROCANNIBOL) [Suspect]
  5. OXAZEPAM [Suspect]

REACTIONS (4)
  - DRUG ABUSER [None]
  - LETHARGY [None]
  - OVERDOSE [None]
  - SOMNOLENCE [None]
